FAERS Safety Report 7000249-8 (Version None)
Quarter: 2010Q3

REPORT INFORMATION
  Report Type: 
  Country: None (occurrence: None)
  Receive Date: 20100920
  Receipt Date: 20100412
  Transmission Date: 20110219
  Serious: Yes (Hospitalization)
  Sender: FDA-Public Use
  Company Number: US-ASTRAZENECA-2009UW07576

PATIENT
  Age: 13630 Day
  Sex: Male

DRUGS (2)
  1. SEROQUEL [Suspect]
     Dosage: 25 MG-100 MG
     Route: 048
     Dates: start: 20070808
  2. DEPAKOTE [Concomitant]
     Dates: start: 20070808

REACTIONS (3)
  - DIABETES MELLITUS [None]
  - DIABETES MELLITUS INADEQUATE CONTROL [None]
  - HYPERGLYCAEMIC HYPEROSMOLAR NONKETOTIC SYNDROME [None]
